FAERS Safety Report 5826775-2 (Version None)
Quarter: 2008Q3

REPORT INFORMATION
  Report Type: 
  Country: None (occurrence: None)
  Receive Date: 20080725
  Receipt Date: 20080711
  Transmission Date: 20090109
  Serious: Yes (Death, Other)
  Sender: FDA-Public Use
  Company Number: MC200800314

PATIENT
  Age: 45 Year
  Sex: Female

DRUGS (2)
  1. ANGIOMAX [Suspect]
     Indication: PERCUTANEOUS CORONARY INTERVENTION
  2. PLAVIX [Suspect]
     Indication: PERCUTANEOUS CORONARY INTERVENTION

REACTIONS (9)
  - CIRCULATORY COLLAPSE [None]
  - EMBOLISM [None]
  - HAEMORRHAGIC STROKE [None]
  - HEADACHE [None]
  - HYPERTENSION [None]
  - LISTLESS [None]
  - MUSCLE RIGIDITY [None]
  - POST PROCEDURAL COMPLICATION [None]
  - UNRESPONSIVE TO STIMULI [None]
